FAERS Safety Report 24380619 (Version 2)
Quarter: 2024Q4

REPORT INFORMATION
  Report Type: Report from Study
  Country: US (occurrence: US)
  Receive Date: 20240930
  Receipt Date: 20241013
  Transmission Date: 20250114
  Serious: Yes (Death)
  Sender: ARDELYX
  Company Number: US-ARDELYX-2024ARDX007216

PATIENT
  Age: 51 Year
  Sex: Male

DRUGS (2)
  1. XPHOZAH [Suspect]
     Active Substance: TENAPANOR HYDROCHLORIDE
     Indication: Chronic kidney disease
     Dosage: 20 MILLIGRAM, BID
     Route: 048
     Dates: start: 20240823, end: 202408
  2. CARVEDILOL [Concomitant]
     Active Substance: CARVEDILOL
     Indication: Product used for unknown indication
     Dosage: 12.5 MILLIGRAM (1 TABLET), BID
     Route: 048

REACTIONS (1)
  - Cardiac arrest [Fatal]

NARRATIVE: CASE EVENT DATE: 20240831
